FAERS Safety Report 20815391 (Version 1)
Quarter: 2022Q2

REPORT INFORMATION
  Report Type: Spontaneous
  Country: US (occurrence: US)
  Receive Date: 20220511
  Receipt Date: 20220511
  Transmission Date: 20220721
  Serious: Yes (Hospitalization)
  Sender: FDA-Public Use
  Company Number: US-ALKERMES INC.-ALK-2022-002220

PATIENT
  Sex: Male
  Weight: 90.703 kg

DRUGS (1)
  1. VIVITROL [Suspect]
     Active Substance: NALTREXONE
     Indication: Product used for unknown indication
     Dosage: 380 MILLIGRAM, QMO
     Route: 030
     Dates: start: 202204

REACTIONS (7)
  - Pulmonary embolism [Recovered/Resolved]
  - Pulmonary granuloma [Unknown]
  - Bronchial wall thickening [Unknown]
  - Faeces soft [Unknown]
  - Hallucination [Unknown]
  - Wrong technique in product usage process [Recovered/Resolved]
  - Rash papular [Unknown]

NARRATIVE: CASE EVENT DATE: 20220101
